FAERS Safety Report 4471098-X (Version None)
Quarter: 2004Q4

REPORT INFORMATION
  Report Type: 
  Country: None (occurrence: None)
  Receive Date: 20041011
  Receipt Date: 20040929
  Transmission Date: 20050328
  Serious: Yes (Other)
  Sender: FDA-Public Use
  Company Number: PHBS2004DE12983

PATIENT

DRUGS (1)
  1. HYDROCHLOROTHIAZIDE [Suspect]
     Dosage: 0.5 MG/KG/DAY

REACTIONS (4)
  - HYPERCALCIURIA [None]
  - HYPOKALAEMIA [None]
  - PROTEINURIA [None]
  - RENAL CYST [None]
